FAERS Safety Report 6600812-X (Version None)
Quarter: 2010Q1

REPORT INFORMATION
  Report Type: 
  Country: None (occurrence: None)
  Receive Date: 20100223
  Receipt Date: 20100223
  Transmission Date: 20100710
  Serious: Yes (Other)
  Sender: FDA-Public Use
  Company Number: None

PATIENT
  Age: 42 Year
  Sex: Male
  Weight: 88.4514 kg

DRUGS (1)
  1. CHANTIX [Suspect]
     Indication: SMOKING CESSATION THERAPY
     Dosage: 1 MG 2 X DAY PO
     Route: 048
     Dates: start: 20100104, end: 20100215

REACTIONS (6)
  - DISTURBANCE IN SEXUAL AROUSAL [None]
  - HYPERSOMNIA [None]
  - INSOMNIA [None]
  - MAJOR DEPRESSION [None]
  - PANIC REACTION [None]
  - SUICIDAL IDEATION [None]
